FAERS Safety Report 9387232 (Version 1)
Quarter: 2013Q3

REPORT INFORMATION
  Report Type: Spontaneous
  Country: SE (occurrence: SE)
  Receive Date: 20130708
  Receipt Date: 20130708
  Transmission Date: 20140515
  Serious: Yes (Death, Other)
  Sender: FDA-Public Use
  Company Number: SE-B.I. PHARMACEUTICALS,INC./RIDGEFIELD-2013-SW-00350SW

PATIENT
  Age: 85 Year
  Sex: Female

DRUGS (11)
  1. PRADAXA [Suspect]
     Indication: ATRIAL FIBRILLATION
     Dosage: 220 MG
     Route: 048
     Dates: start: 20120401, end: 20130509
  2. RANITIDIN [Concomitant]
  3. METOPROLOL UNSPECIFIED [Concomitant]
  4. ENALAPRIL UNSPECIFIED [Concomitant]
  5. CALCICHEW-D3 APELSIN [Concomitant]
  6. COSOPT [Concomitant]
  7. AMLODIPIN [Concomitant]
  8. FOLSYRA ACTAVIS [Concomitant]
  9. BEHEPAN [Concomitant]
     Dosage: FILM-COATED TABLET
  10. XALATAN [Concomitant]
  11. OPNOL [Concomitant]

REACTIONS (1)
  - Cerebral haemorrhage [Fatal]
